FAERS Safety Report 9272235 (Version 1)
Quarter: 2013Q2

REPORT INFORMATION
  Report Type: Spontaneous
  Country: US (occurrence: US)
  Receive Date: 20130506
  Receipt Date: 20130506
  Transmission Date: 20140414
  Serious: No
  Sender: FDA-Public Use
  Company Number: US-ASTRAZENECA-2013SE15060

PATIENT
  Age: 57 Year
  Sex: Female

DRUGS (3)
  1. PRILOSEC OTC [Suspect]
     Route: 048
     Dates: start: 20130216, end: 20130227
  2. MEDS FOR OSTEOPENIA [Concomitant]
     Indication: OSTEOPENIA
  3. FIORICET [Concomitant]
     Indication: MIGRAINE

REACTIONS (1)
  - Pain in jaw [Recovering/Resolving]
